FAERS Safety Report 8012267-1 (Version None)
Quarter: 2011Q4

REPORT INFORMATION
  Report Type: 
  Country: None (occurrence: None)
  Receive Date: 20111228
  Receipt Date: 20111226
  Transmission Date: 20120403
  Serious: Yes (Death)
  Sender: FDA-Public Use
  Company Number: JP-ELI_LILLY_AND_COMPANY-JP201110000768

PATIENT
  Age: 69 Year
  Sex: Male

DRUGS (1)
  1. ADCIRCA [Suspect]
     Dosage: UNK
     Route: 048
     Dates: start: 20110917

REACTIONS (1)
  - INTERSTITIAL LUNG DISEASE [None]
